FAERS Safety Report 20654811 (Version 3)
Quarter: 2022Q4

REPORT INFORMATION
  Report Type: Report from Study
  Country: US (occurrence: US)
  Receive Date: 20220330
  Receipt Date: 20221201
  Transmission Date: 20230113
  Serious: Yes (Other)
  Sender: FDA-Public Use
  Company Number: US-TAKEDA-US201931326

PATIENT
  Age: 68 Year
  Sex: Male

DRUGS (4)
  1. VELAGLUCERASE ALFA [Suspect]
     Active Substance: VELAGLUCERASE ALFA
     Indication: Parkinson^s disease
     Dosage: 4400 INTERNATIONAL UNIT, Q2WEEKS
     Route: 042
     Dates: start: 20160915
  2. VELAGLUCERASE ALFA [Suspect]
     Active Substance: VELAGLUCERASE ALFA
     Indication: Gaucher^s disease
     Dosage: 4400 INTERNATIONAL UNIT, Q2WEEKS
     Route: 042
     Dates: start: 201806
  3. VELAGLUCERASE ALFA [Suspect]
     Active Substance: VELAGLUCERASE ALFA
     Indication: Orthostatic hypotension
     Dosage: 4400 INTERNATIONAL UNIT, Q2WEEKS
     Route: 058
     Dates: start: 202207
  4. VELAGLUCERASE ALFA [Suspect]
     Active Substance: VELAGLUCERASE ALFA
     Indication: Lipidosis

REACTIONS (12)
  - Loss of consciousness [Unknown]
  - Malaise [Unknown]
  - Blood pressure fluctuation [Unknown]
  - Orthostatic hypotension [Unknown]
  - Latent tuberculosis [Unknown]
  - Intentional product use issue [Unknown]
  - Product availability issue [Unknown]
  - Inappropriate schedule of product administration [Unknown]
  - Hypertension [Unknown]
  - Osteoarthritis [Unknown]
  - Blood pressure decreased [Unknown]
  - Product dose omission issue [Unknown]

NARRATIVE: CASE EVENT DATE: 20220309
